FAERS Safety Report 24022471 (Version 1)
Quarter: 2024Q2

REPORT INFORMATION
  Report Type: Spontaneous
  Country: ES (occurrence: ES)
  Receive Date: 20240627
  Receipt Date: 20240627
  Transmission Date: 20240716
  Serious: No
  Sender: FDA-Public Use
  Company Number: ES-ROCHE-3549545

PATIENT
  Age: 53 Year
  Sex: Female

DRUGS (1)
  1. ENTRECTINIB [Suspect]
     Active Substance: ENTRECTINIB
     Indication: Gastrointestinal stromal tumour
     Route: 065

REACTIONS (4)
  - Peripheral sensory neuropathy [Unknown]
  - Pneumonia [Unknown]
  - Constipation [Unknown]
  - Hypotension [Unknown]
